FAERS Safety Report 25127678 (Version 1)
Quarter: 2025Q1

REPORT INFORMATION
  Report Type: Spontaneous
  Country: US (occurrence: US)
  Receive Date: 20250327
  Receipt Date: 20250327
  Transmission Date: 20250408
  Serious: Yes (Other)
  Sender: SANOFI AVENTIS
  Company Number: US-SA-2025SA087052

PATIENT
  Age: 84 Year
  Sex: Female

DRUGS (9)
  1. DUPIXENT [Suspect]
     Active Substance: DUPILUMAB
     Indication: Dermatitis atopic
     Dosage: 300 MG, QOW
     Route: 058
     Dates: end: 2024
  2. ATORVASTATIN CALCIUM [Concomitant]
     Active Substance: ATORVASTATIN CALCIUM
  3. CALCIUM [Concomitant]
     Active Substance: CALCIUM
  4. COLACE [Concomitant]
     Active Substance: DOCUSATE SODIUM
  5. LOVASTATIN [Concomitant]
     Active Substance: LOVASTATIN
  6. MAGNESIUM [MAGNESIUM CHELATE] [Concomitant]
  7. METOPROLOL SUCCINATE [Concomitant]
     Active Substance: METOPROLOL SUCCINATE
  8. MORPHINE SULFATE [Concomitant]
     Active Substance: MORPHINE SULFATE
  9. ERGOCALCIFEROL [Concomitant]
     Active Substance: ERGOCALCIFEROL

REACTIONS (2)
  - Atrial fibrillation [Not Recovered/Not Resolved]
  - Knee arthroplasty [Not Recovered/Not Resolved]

NARRATIVE: CASE EVENT DATE: 20241201
